FAERS Safety Report 18467321 (Version 1)
Quarter: 2020Q4

REPORT INFORMATION
  Report Type: Other
  Country: CA (occurrence: CA)
  Receive Date: 20201105
  Receipt Date: 20201105
  Transmission Date: 20210114
  Serious: Yes (Other)
  Sender: FDA-Public Use
  Company Number: CA-APOTEX-2020AP021007

PATIENT
  Age: 72 Year
  Sex: Female
  Weight: 64 kg

DRUGS (1)
  1. EZETIMIBE. [Suspect]
     Active Substance: EZETIMIBE
     Indication: BLOOD CHOLESTEROL INCREASED
     Dosage: 10 MILLIGRAM, QD
     Route: 048

REACTIONS (2)
  - Product substitution issue [Recovered/Resolved]
  - Diarrhoea [Recovered/Resolved]
